FAERS Safety Report 8501269-4 (Version None)
Quarter: 2012Q3

REPORT INFORMATION
  Report Type: 
  Country: None (occurrence: None)
  Receive Date: 20120710
  Receipt Date: 20120626
  Transmission Date: 20120928
  Serious: No
  Sender: FDA-Public Use
  Company Number: US-ASTRAZENECA-2012SE43548

PATIENT
  Age: 72 Year
  Sex: Female
  Weight: 42.6 kg

DRUGS (3)
  1. PRILOSEC [Suspect]
     Indication: GASTROOESOPHAGEAL REFLUX DISEASE
     Route: 048
  2. NEXIUM [Suspect]
     Indication: GASTROOESOPHAGEAL REFLUX DISEASE
     Route: 048
     Dates: start: 20120601
  3. PRILOSEC [Suspect]
     Route: 048

REACTIONS (9)
  - DYSPHONIA [None]
  - HEADACHE [None]
  - DIARRHOEA [None]
  - ABDOMINAL PAIN UPPER [None]
  - COUGH [None]
  - LIP SWELLING [None]
  - DYSPNOEA [None]
  - ASTHENIA [None]
  - SNEEZING [None]
